FAERS Safety Report 5327484-9 (Version None)
Quarter: 2007Q2

REPORT INFORMATION
  Report Type: 
  Country: None (occurrence: None)
  Receive Date: 20070517
  Receipt Date: 20070201
  Transmission Date: 20071010
  Serious: Yes (Hospitalization)
  Sender: FDA-Public Use
  Company Number: US-JNJFOC-20070104418

PATIENT
  Age: 14 Month
  Sex: Male

DRUGS (12)
  1. TRAMADOL HCL [Suspect]
     Indication: ACCIDENTAL OVERDOSE
     Route: 048
  2. CYCLOBENZAPRINE HCL [Suspect]
     Indication: ACCIDENTAL OVERDOSE
     Route: 048
  3. ANTIHYPERLIPIDEMIC [Suspect]
     Indication: ACCIDENTAL OVERDOSE
     Route: 048
  4. UNKNOWN ANTIDEPRESSANT [Suspect]
     Indication: ACCIDENTAL OVERDOSE
     Route: 048
  5. TRAZODONE HCL [Suspect]
     Indication: ACCIDENTAL OVERDOSE
     Route: 048
  6. HYDROCHLOROTHIAZIDE [Suspect]
     Indication: ACCIDENTAL OVERDOSE
     Route: 048
  7. CLONIDINE [Suspect]
     Indication: ACCIDENTAL OVERDOSE
     Route: 048
  8. LISINOPRIL [Suspect]
     Indication: ACCIDENTAL OVERDOSE
     Route: 048
  9. CALCIUM ANTAGONIST [Suspect]
     Indication: ACCIDENTAL OVERDOSE
     Route: 048
  10. THYROID PREPARATION [Suspect]
     Indication: ACCIDENTAL OVERDOSE
     Route: 048
  11. HYPOGLYCEMIC [Suspect]
     Indication: ACCIDENTAL OVERDOSE
     Route: 048
  12. METFORMIN HCL [Suspect]
     Indication: ACCIDENTAL OVERDOSE
     Route: 048

REACTIONS (4)
  - ACCIDENTAL DRUG INTAKE BY CHILD [None]
  - LETHARGY [None]
  - MULTIPLE DRUG OVERDOSE ACCIDENTAL [None]
  - SOMNOLENCE [None]
